FAERS Safety Report 6793194-4 (Version None)
Quarter: 2010Q2

REPORT INFORMATION
  Report Type: 
  Country: None (occurrence: None)
  Receive Date: 20100624
  Receipt Date: 20091118
  Transmission Date: 20101027
  Serious: Yes (Other)
  Sender: FDA-Public Use
  Company Number: US-MYLANLABS-2009S1013211

PATIENT
  Age: 43 Year
  Sex: Female
  Weight: 75.3 kg

DRUGS (6)
  1. CLOZAPINE [Suspect]
     Indication: SCHIZOPHRENIA
     Route: 048
     Dates: start: 20090715, end: 20090925
  2. CLOZAPINE [Suspect]
     Route: 048
     Dates: start: 20090928, end: 20090929
  3. RISPERDAL [Concomitant]
  4. FLUOXETINE HCL [Concomitant]
  5. COGENTIN [Concomitant]
  6. REMERON [Concomitant]

REACTIONS (2)
  - GRANULOCYTOPENIA [None]
  - LEUKOPENIA [None]
